FAERS Safety Report 7215655-6 (Version None)
Quarter: 2011Q1

REPORT INFORMATION
  Report Type: 
  Country: None (occurrence: None)
  Receive Date: 20110107
  Receipt Date: 20110105
  Transmission Date: 20110831
  Serious: No
  Sender: FDA-Public Use
  Company Number: US-TEVA-262208USA

PATIENT
  Age: 80 Year
  Sex: Male

DRUGS (3)
  1. TRAMADOL [Concomitant]
  2. AZILECT [Suspect]
     Indication: PARKINSON'S DISEASE
     Route: 048
  3. DULOXETINE HYDROCHLORIDE [Concomitant]

REACTIONS (2)
  - TACHYCARDIA [None]
  - MOVEMENT DISORDER [None]
